FAERS Safety Report 5245617-X (Version None)
Quarter: 2007Q1

REPORT INFORMATION
  Report Type: 
  Country: None (occurrence: None)
  Receive Date: 20070223
  Receipt Date: 20070215
  Transmission Date: 20070707
  Serious: Yes (Hospitalization)
  Sender: FDA-Public Use
  Company Number: CA-BOEHRINGER INGELHEIM PHARMACEUTICALS, INC.-2007-CN-00154CN

PATIENT
  Age: 84 Year
  Sex: Male

DRUGS (13)
  1. SPIRIVA [Suspect]
     Indication: CHRONIC OBSTRUCTIVE PULMONARY DISEASE
  2. ATROVENT [Suspect]
  3. LASIX [Concomitant]
  4. PANTOPRAZOLE SODIUM [Concomitant]
  5. PAXIL [Concomitant]
  6. SEROQUEL [Concomitant]
  7. POTASSIUM ACETATE [Concomitant]
  8. ATIVAN [Concomitant]
  9. TYLENOL [Concomitant]
  10. SALBUTAMOL [Concomitant]
  11. PULMICORT [Concomitant]
  12. PREDNISONE TAB [Concomitant]
  13. SYNTHROID [Concomitant]

REACTIONS (2)
  - CHRONIC OBSTRUCTIVE PULMONARY DISEASE [None]
  - PNEUMONIA [None]
